FAERS Safety Report 6451518-1 (Version None)
Quarter: 2009Q4

REPORT INFORMATION
  Report Type: 
  Country: None (occurrence: None)
  Receive Date: 20091123
  Receipt Date: 20090917
  Transmission Date: 20100525
  Serious: No
  Sender: FDA-Public Use
  Company Number: US-BRISTOL-MYERS SQUIBB COMPANY-14786586

PATIENT

DRUGS (1)
  1. AVALIDE [Suspect]

REACTIONS (1)
  - BLOOD PRESSURE INCREASED [None]
